FAERS Safety Report 6973904-3 (Version None)
Quarter: 2010Q3

REPORT INFORMATION
  Report Type: 
  Country: None (occurrence: None)
  Receive Date: 20100907
  Receipt Date: 20100824
  Transmission Date: 20110219
  Serious: Yes (Death, Other)
  Sender: FDA-Public Use
  Company Number: MPS1-1000361

PATIENT
  Age: 8 Year
  Sex: Male
  Weight: 20 kg

DRUGS (1)
  1. ALDURAZYME [Suspect]
     Indication: MUCOPOLYSACCHARIDOSIS I
     Dosage: 0.58 MG/KG, 1X/W, INTRAVENOUS
     Route: 042
     Dates: start: 20041201

REACTIONS (15)
  - ABASIA [None]
  - CARDIO-RESPIRATORY ARREST [None]
  - DEVELOPMENTAL DELAY [None]
  - DIAPHRAGMATIC HERNIA [None]
  - GASTROENTERITIS [None]
  - INFUSION RELATED REACTION [None]
  - NAUSEA [None]
  - PALLOR [None]
  - PYREXIA [None]
  - RESPIRATORY FAILURE [None]
  - SINUSITIS [None]
  - SPEECH DISORDER [None]
  - TRACHEOSTOMY MALFUNCTION [None]
  - UPPER RESPIRATORY TRACT INFECTION [None]
  - VOMITING [None]
